FAERS Safety Report 10700142 (Version 1)
Quarter: 2015Q1

REPORT INFORMATION
  Report Type: Spontaneous
  Country: IL (occurrence: IL)
  Receive Date: 20150109
  Receipt Date: 20150109
  Transmission Date: 20150721
  Serious: Yes (Hospitalization, Other)
  Sender: FDA-Public Use
  Company Number: IL-CELGENE-ISR-2014125784

PATIENT
  Age: 93 Year
  Sex: Male

DRUGS (1)
  1. AZACITIDINE. [Suspect]
     Active Substance: AZACITIDINE
     Indication: MYELODYSPLASTIC SYNDROME
     Route: 065

REACTIONS (3)
  - Troponin increased [Unknown]
  - Cardiac failure congestive [Unknown]
  - Atrial fibrillation [Not Recovered/Not Resolved]
